FAERS Safety Report 5361585-4 (Version None)
Quarter: 2007Q2

REPORT INFORMATION
  Report Type: 
  Country: None (occurrence: None)
  Receive Date: 20070619
  Receipt Date: 20070613
  Transmission Date: 20071010
  Serious: Yes (Other)
  Sender: FDA-Public Use
  Company Number: PHNU2007DE01716

PATIENT
  Sex: Female
  Weight: 66 kg

DRUGS (5)
  1. EXFORGE [Suspect]
     Indication: HYPERTENSION
     Dosage: 1 DF, QD
     Route: 048
     Dates: start: 20070424, end: 20070401
  2. EXFORGE [Suspect]
     Dosage: 0.5 DF, QD
     Route: 048
     Dates: start: 20070401
  3. METO-TABLINEN [Suspect]
     Indication: HYPERTENSION
     Route: 048
     Dates: end: 20060101
  4. HYDROCHLOROTHIAZIDE [Concomitant]
     Dosage: 12.5 MG/D
     Route: 048
  5. VOTUM /GFR/ [Concomitant]
     Dates: start: 20060101

REACTIONS (6)
  - ASTHMA [None]
  - BLOOD PRESSURE DECREASED [None]
  - EYE PRURITUS [None]
  - RAYNAUD'S PHENOMENON [None]
  - SKIN DISCOLOURATION [None]
  - VASOSPASM [None]
